FAERS Safety Report 14188880 (Version 1)
Quarter: 2017Q4

REPORT INFORMATION
  Report Type: Spontaneous
  Country: US (occurrence: US)
  Receive Date: 20171114
  Receipt Date: 20171114
  Transmission Date: 20180321
  Serious: Yes (Other)
  Sender: FDA-Public Use
  Company Number: US-BAXTER-2017BAX037070

PATIENT
  Age: 89 Year
  Sex: Male

DRUGS (2)
  1. ISOTONIC SALINE [Concomitant]
     Active Substance: SODIUM CHLORIDE
     Indication: MEDICATION DILUTION
     Route: 042
  2. VANCOMYCIN INJECTION, USP [Suspect]
     Active Substance: VANCOMYCIN
     Indication: PRODUCT USED FOR UNKNOWN INDICATION
     Dosage: 1 GRAM IN 200 ML OF ISOTONIC SALINE
     Route: 042

REACTIONS (4)
  - Flushing [Unknown]
  - Tachycardia [Recovered/Resolved]
  - Hyperhidrosis [Unknown]
  - Hypotension [Recovered/Resolved]
